FAERS Safety Report 10453029 (Version 1)
Quarter: 2014Q3

REPORT INFORMATION
  Report Type: Spontaneous
  Country: US (occurrence: None)
  Receive Date: 20140912
  Receipt Date: 20140912
  Transmission Date: 20150326
  Serious: No
  Sender: FDA-Public Use
  Company Number: None

PATIENT
  Age: 41 Year
  Sex: Female
  Weight: 89.36 kg

DRUGS (1)
  1. DEXPAK 10 DAY PAK [Suspect]
     Active Substance: DEXAMETHASONE
     Indication: BACK PAIN
     Dosage: 35 10 STEP TAKEN BY MOUTH
     Route: 048
     Dates: start: 20140830, end: 20140905

REACTIONS (17)
  - Palpitations [None]
  - Chest discomfort [None]
  - Pharyngeal oedema [None]
  - Anxiety [None]
  - Hypoaesthesia oral [None]
  - Urticaria [None]
  - Chills [None]
  - Hunger [None]
  - Arthropathy [None]
  - Oral candidiasis [None]
  - Hyperhidrosis [None]
  - Dyspnoea [None]
  - Irritability [None]
  - Myalgia [None]
  - Heart rate increased [None]
  - Insomnia [None]
  - Oropharyngeal pain [None]

NARRATIVE: CASE EVENT DATE: 20140903
